FAERS Safety Report 19172651 (Version 2)
Quarter: 2021Q2

REPORT INFORMATION
  Report Type: Spontaneous
  Country: BR (occurrence: BR)
  Receive Date: 20210423
  Receipt Date: 20210517
  Transmission Date: 20210717
  Serious: Yes (Hospitalization, Other)
  Sender: FDA-Public Use
  Company Number: BR-SA-2021SA124183

PATIENT
  Age: 69 Year
  Sex: Female
  Weight: 73 kg

DRUGS (4)
  1. ENALAPRIL [Concomitant]
     Active Substance: ENALAPRIL
     Indication: HYPERTENSION
     Dosage: 10 MG, BID (1 TABLET EVERY 12 HOURS)
     Route: 048
     Dates: start: 202103
  2. LANTUS [Suspect]
     Active Substance: INSULIN GLARGINE
     Indication: TYPE 2 DIABETES MELLITUS
     Dosage: 26 IU, QD
     Route: 058
     Dates: start: 2011
  3. ATENOLOL. [Concomitant]
     Active Substance: ATENOLOL
     Indication: HYPERTENSION
     Dosage: 100 MG, BID (1 TABLET EVERY 12 HOURS)
     Route: 048
     Dates: start: 202103
  4. GLIFAGE [Concomitant]
     Active Substance: METFORMIN HYDROCHLORIDE
     Indication: TYPE 2 DIABETES MELLITUS
     Dosage: 500 MG, BID (1 TABLET IN THE MORNING AND 1 TABLET AT NIGHT)
     Route: 048
     Dates: start: 2011

REACTIONS (1)
  - Myocardial infarction [Recovered/Resolved]

NARRATIVE: CASE EVENT DATE: 2020
